FAERS Safety Report 24977753 (Version 1)
Quarter: 2025Q1

REPORT INFORMATION
  Report Type: Report from Study
  Country: CO (occurrence: CO)
  Receive Date: 20250217
  Receipt Date: 20250217
  Transmission Date: 20250409
  Serious: Yes (Hospitalization)
  Sender: ABBVIE
  Company Number: CO-ABBVIE-6137067

PATIENT
  Age: 50 Year
  Sex: Female
  Weight: 74 kg

DRUGS (1)
  1. SKYRIZI [Suspect]
     Active Substance: RISANKIZUMAB-RZAA
     Indication: Psoriasis
     Dosage: 150 MG
     Route: 058
     Dates: start: 20230603, end: 20240910

REACTIONS (5)
  - Hemiplegia [Not Recovered/Not Resolved]
  - Hypertension [Unknown]
  - Cerebral ischaemia [Not Recovered/Not Resolved]
  - Hyperhidrosis [Unknown]
  - Syncope [Unknown]

NARRATIVE: CASE EVENT DATE: 20250101
